FAERS Safety Report 11364106 (Version 1)
Quarter: 2015Q3

REPORT INFORMATION
  Report Type: Spontaneous
  Country: US (occurrence: None)
  Receive Date: 20150810
  Receipt Date: 20150810
  Transmission Date: 20151125
  Serious: No
  Sender: FDA-Public Use
  Company Number: None

PATIENT
  Age: 35 Year
  Sex: Female
  Weight: 49.9 kg

DRUGS (1)
  1. MARLISSA [Suspect]
     Active Substance: ETHINYL ESTRADIOL\LEVONORGESTREL
     Indication: ORAL CONTRACEPTION
     Dosage: 1 PILL
     Route: 048
     Dates: start: 20150619, end: 20150624

REACTIONS (4)
  - Wrong technique in product usage process [None]
  - Product container issue [None]
  - Wrong drug administered [None]
  - Product substitution issue [None]

NARRATIVE: CASE EVENT DATE: 20150625
